FAERS Safety Report 7068068-4 (Version None)
Quarter: 2010Q4

REPORT INFORMATION
  Report Type: 
  Country: None (occurrence: None)
  Receive Date: 20101027
  Receipt Date: 20101027
  Transmission Date: 20110411
  Serious: Yes (Other)
  Sender: FDA-Public Use
  Company Number: None

PATIENT
  Age: 61 Year
  Sex: Male
  Weight: 92.9874 kg

DRUGS (1)
  1. LISINOPRIL [Suspect]
     Indication: BLOOD PRESSURE
     Dosage: 10MG. 1 PER DAY PO
     Route: 048
     Dates: start: 20050101, end: 20100901

REACTIONS (4)
  - BLOOD PRESSURE FLUCTUATION [None]
  - CHEST PAIN [None]
  - DELAYED EFFECTS OF RADIATION [None]
  - PRODUCT QUALITY ISSUE [None]
